FAERS Safety Report 23226725 (Version 1)
Quarter: 2023Q4

REPORT INFORMATION
  Report Type: Spontaneous
  Country: ES (occurrence: ES)
  Receive Date: 20231124
  Receipt Date: 20231124
  Transmission Date: 20240110
  Serious: Yes (Other)
  Sender: FDA-Public Use
  Company Number: ES-SUN PHARMACEUTICAL INDUSTRIES LTD-2023R1-419954

PATIENT
  Age: 13 Year
  Sex: Male

DRUGS (6)
  1. ACYCLOVIR [Suspect]
     Active Substance: ACYCLOVIR
     Indication: Germ cell neoplasm
     Dosage: UNK
     Route: 065
  2. CISPLATIN [Suspect]
     Active Substance: CISPLATIN
     Indication: Germ cell neoplasm
     Dosage: 20 MILLIGRAM/SQ. METER
     Route: 042
  3. COTRIMOXAZOLE [Suspect]
     Active Substance: SULFAMETHOXAZOLE\TRIMETHOPRIM
     Indication: Germ cell neoplasm
     Dosage: UNK
     Route: 065
  4. FLUCONAZOLE [Suspect]
     Active Substance: FLUCONAZOLE
     Indication: Germ cell neoplasm
     Dosage: UNK
     Route: 065
  5. IFOSFAMIDE [Suspect]
     Active Substance: IFOSFAMIDE
     Indication: Germ cell neoplasm
     Dosage: 2000 MILLIGRAM/SQ. METER
     Route: 042
  6. ETOPOSIDE [Suspect]
     Active Substance: ETOPOSIDE
     Indication: Germ cell neoplasm
     Dosage: 300 MILLIGRAM/SQ. METER
     Route: 042

REACTIONS (3)
  - Bacterial sepsis [Unknown]
  - Mucosal inflammation [Unknown]
  - Vomiting [Unknown]
